FAERS Safety Report 8476191-2 (Version None)
Quarter: 2012Q2

REPORT INFORMATION
  Report Type: 
  Country: None (occurrence: None)
  Receive Date: 20120628
  Receipt Date: 20120607
  Transmission Date: 20120825
  Serious: No
  Sender: FDA-Public Use
  Company Number: US-ASTRAZENECA-2011SE55931

PATIENT
  Age: 75 Year
  Sex: Male
  Weight: 72.6 kg

DRUGS (2)
  1. ASPIRIN [Concomitant]
  2. CRESTOR [Suspect]
     Indication: HYPERLIPIDAEMIA
     Route: 048
     Dates: start: 20101018, end: 20110823

REACTIONS (5)
  - OEDEMA PERIPHERAL [None]
  - MYALGIA [None]
  - ADVERSE EVENT [None]
  - HEAD DISCOMFORT [None]
  - JOINT SWELLING [None]
